FAERS Safety Report 16080913 (Version 2)
Quarter: 2019Q2

REPORT INFORMATION
  Report Type: Report from Study
  Country: CA (occurrence: CA)
  Receive Date: 20190316
  Receipt Date: 20190402
  Transmission Date: 20190711
  Serious: Yes (Other)
  Sender: FDA-Public Use
  Company Number: CA-TAKEDA-2019TUS013366

PATIENT
  Age: 55 Year
  Sex: Female

DRUGS (7)
  1. EVENING PRIMROSE OIL [Concomitant]
     Active Substance: EVENING PRIMROSE OIL\HERBALS
     Dosage: UNK
  2. VEDOLIZUMAB [Suspect]
     Active Substance: VEDOLIZUMAB
     Indication: CROHN^S DISEASE
     Dosage: 300 MILLIGRAM
     Route: 042
     Dates: start: 20181019
  3. CALCIUM [Concomitant]
     Active Substance: CALCIUM
     Dosage: UNK
  4. MEZAVANT [Concomitant]
     Active Substance: MESALAMINE
     Dosage: 4.8 MILLIGRAM, QD
  5. VIT D [Concomitant]
     Active Substance: VITAMIN D NOS
     Dosage: UNK
  6. VITAMIN B COMPLEX [Concomitant]
     Active Substance: CYANOCOBALAMIN\DEXPANTHENOL\NIACINAMIDE\PYRIDOXINE HYDROCHLORIDE\RIBOFLAVIN 5^-PHOSPHATE SODIUM\THIAMINE HYDROCHLORIDE\VITAMIN B COMPLEX
     Dosage: UNK
  7. MEZAVANT [Concomitant]
     Active Substance: MESALAMINE
     Dosage: 2.4 MILLIGRAM
     Dates: start: 2008, end: 201805

REACTIONS (5)
  - Hyperaesthesia teeth [Unknown]
  - Aura [Not Recovered/Not Resolved]
  - Muscle twitching [Not Recovered/Not Resolved]
  - Hypoaesthesia [Not Recovered/Not Resolved]
  - Dysgeusia [Not Recovered/Not Resolved]

NARRATIVE: CASE EVENT DATE: 201901
